FAERS Safety Report 21331260 (Version 1)
Quarter: 2022Q3

REPORT INFORMATION
  Report Type: Spontaneous
  Country: US (occurrence: US)
  Receive Date: 20220914
  Receipt Date: 20220914
  Transmission Date: 20221027
  Serious: Yes (Other)
  Sender: FDA-Public Use
  Company Number: US-AMGEN-USASP2022157045

PATIENT

DRUGS (1)
  1. TRASTUZUMAB [Suspect]
     Active Substance: TRASTUZUMAB
     Indication: Endometrial cancer
     Route: 065

REACTIONS (4)
  - Endometrial cancer [Unknown]
  - Drug effective for unapproved indication [Unknown]
  - Off label use [Unknown]
  - Acquired gene mutation [Unknown]
